FAERS Safety Report 10217140 (Version 1)
Quarter: 2014Q2

REPORT INFORMATION
  Report Type: Report from Study
  Country: BR (occurrence: BR)
  Receive Date: 20140604
  Receipt Date: 20140604
  Transmission Date: 20141212
  Serious: Yes (Death, Other)
  Sender: FDA-Public Use
  Company Number: PHHY2014BR067913

PATIENT
  Sex: Female

DRUGS (2)
  1. ACLASTA [Suspect]
     Indication: OSTEOPOROSIS
     Dosage: 1 DF, (ONE APPLICATION PER YEAR)
     Route: 042
     Dates: start: 2013
  2. CALCIUM [Concomitant]
     Indication: OSTEOPOROSIS
     Dosage: UNK (STOP DATE IN 2014)

REACTIONS (3)
  - Death [Fatal]
  - Cerebrovascular accident [Unknown]
  - Vomiting [Unknown]
